FAERS Safety Report 7600138-1 (Version None)
Quarter: 2011Q2

REPORT INFORMATION
  Report Type: 
  Country: None (occurrence: None)
  Receive Date: 20110629
  Receipt Date: 20110620
  Transmission Date: 20111010
  Serious: Yes (Hospitalization)
  Sender: FDA-Public Use
  Company Number: US-2011-10154

PATIENT
  Age: 49 Year
  Sex: Male

DRUGS (35)
  1. ALLOPURINOL [Concomitant]
  2. FUROSEMIDE [Concomitant]
  3. METHYLPREDNISOLONE [Concomitant]
  4. PIPERACILLIN + TAZOBACTAM (PIPERACILLIN SODIUM, TAZOBACTAM SODIUM) [Concomitant]
  5. DEXTROSE [Concomitant]
  6. PROCHLORPERAZINE (PROCHLORPERAZINE MALEATE) [Concomitant]
  7. VASELINE CONSTANT (PARAFFIN) [Concomitant]
  8. POTASSIUM CHLORIDE [Concomitant]
  9. ACETAMINOPHEN [Concomitant]
  10. FLUCONAZOLE [Concomitant]
  11. OMEPRAZOLE [Concomitant]
  12. TRIAZOLAM [Concomitant]
  13. CIPROFLOXACIN ACO (CIPROFLOXACIN HYDROCHLORIDE) [Concomitant]
  14. DUCOSATE (DIOCTYL SODIUM SULFOSUCCINATE) [Concomitant]
  15. MULTIVITAMIN [Concomitant]
  16. FILGRASTIM (FILGRASTIM) [Concomitant]
  17. MORPHINE [Concomitant]
  18. PENICILLIN (BENZYLPENICILLIN POTASSIUM) [Concomitant]
  19. PROCHLORPERAZINE MALEATE (PROCHLORPERAZINE MALEATE) [Concomitant]
  20. LACTULOSE AL (LACTULOSE) [Concomitant]
  21. DIPHENHYDRAMINE HCL [Concomitant]
  22. BUSULFAN [Suspect]
     Indication: STEM CELL TRANSPLANT
     Dosage: 67 MG,  334 MG, MILLIGRAM(S)DAILY DOSE, INTRAVENOUS, 334 MG MILLIGRAM(S), DAILY DOSE, INTRAVENOUS
     Route: 042
     Dates: start: 20110224, end: 20110224
  23. BUSULFAN [Suspect]
     Indication: STEM CELL TRANSPLANT
     Dosage: 67 MG,  334 MG, MILLIGRAM(S)DAILY DOSE, INTRAVENOUS, 334 MG MILLIGRAM(S), DAILY DOSE, INTRAVENOUS
     Route: 042
     Dates: start: 20110301, end: 20110304
  24. ETOPOSIDE [Concomitant]
  25. ACYDOVIR (ACICLOVIR) [Concomitant]
  26. SODIUM CHLORIDE 0.9% [Concomitant]
  27. URSODIOL (URSODIOL) [Concomitant]
  28. DEXAMETHASONE [Concomitant]
  29. LIDOCAINE/ MAALOX/ DIPHENHYDRAMINE [Concomitant]
  30. CYCLOPHOSPHAMIDE [Concomitant]
  31. ONDANSETRON A (ONDANSETRON HYDROCHLORIDE) [Concomitant]
  32. MESNA [Concomitant]
  33. VANCOMYCIN [Concomitant]
  34. DEXTROSE [Concomitant]
  35. MICRO K (POTASSIUM CHLORIDE) [Concomitant]

REACTIONS (2)
  - RENAL FAILURE ACUTE [None]
  - DIABETES INSIPIDUS [None]
